FAERS Safety Report 4406735-9 (Version None)
Quarter: 2004Q3

REPORT INFORMATION
  Report Type: 
  Country: None (occurrence: None)
  Receive Date: 20040715
  Receipt Date: 20040713
  Transmission Date: 20050211
  Serious: Yes (Other)
  Sender: FDA-Public Use
  Company Number: 2004AP03466

PATIENT
  Age: 53 Year
  Sex: Male

DRUGS (6)
  1. SEROQUEL [Suspect]
     Dosage: 25 MG TID PO
     Route: 048
     Dates: start: 20040416
  2. DEPAKENE [Concomitant]
  3. UBRETID [Concomitant]
  4. SILECE [Concomitant]
  5. NO MATCH [Concomitant]
  6. AKINETON [Concomitant]

REACTIONS (1)
  - THROMBOCYTOPENIA [None]
